FAERS Safety Report 10529840 (Version 1)
Quarter: 2014Q4

REPORT INFORMATION
  Report Type: Spontaneous
  Country: IN (occurrence: IN)
  Receive Date: 20141021
  Receipt Date: 20141021
  Transmission Date: 20150528
  Serious: Yes (Hospitalization, Other)
  Sender: FDA-Public Use
  Company Number: IN-SUN PHARMACEUTICAL INDUSTRIES LTD-2014SUN02353

PATIENT
  Age: 32 Year
  Sex: Male

DRUGS (15)
  1. MIRTAZAPINE. [Concomitant]
     Active Substance: MIRTAZAPINE
     Dosage: 15 MG, AT NIGHT
  2. QUETIAPINE FUMARATE 100MG TABLETS [Suspect]
     Active Substance: QUETIAPINE FUMARATE
     Indication: INSOMNIA
     Dosage: 100 MG, UNK
     Route: 065
  3. SODIUM VALPROATE [Concomitant]
     Active Substance: VALPROATE SODIUM
     Indication: ANXIETY
     Dosage: 800 MG/DAY (AFTER HOSPITALIZATION)
  4. SODIUM VALPROATE [Concomitant]
     Active Substance: VALPROATE SODIUM
     Indication: RESTLESSNESS
  5. SODIUM VALPROATE [Concomitant]
     Active Substance: VALPROATE SODIUM
     Indication: SLEEP DISORDER
  6. QUETIAPINE FUMARATE 100MG TABLETS [Suspect]
     Active Substance: QUETIAPINE FUMARATE
     Indication: ANXIETY
  7. AMITRIPTYLINE [Concomitant]
     Active Substance: AMITRIPTYLINE
     Indication: RESTLESSNESS
  8. AMITRIPTYLINE [Concomitant]
     Active Substance: AMITRIPTYLINE
     Indication: SLEEP DISORDER
  9. AMITRIPTYLINE [Concomitant]
     Active Substance: AMITRIPTYLINE
     Indication: ANXIETY
  10. AMITRIPTYLINE [Concomitant]
     Active Substance: AMITRIPTYLINE
     Indication: IRRITABILITY
  11. SODIUM VALPROATE [Concomitant]
     Active Substance: VALPROATE SODIUM
     Indication: DYSPHORIA
     Dosage: 600 MG/DAY, UNK
  12. QUETIAPINE FUMARATE 100MG TABLETS [Suspect]
     Active Substance: QUETIAPINE FUMARATE
     Indication: AFFECTIVE DISORDER
     Dosage: 800 MG/DAY, UNK
     Route: 065
  13. AMITRIPTYLINE [Concomitant]
     Active Substance: AMITRIPTYLINE
     Indication: DYSPHORIA
     Dosage: 25 MG, QD (AT NIGHT)
     Route: 048
  14. SODIUM VALPROATE [Concomitant]
     Active Substance: VALPROATE SODIUM
     Indication: IRRITABILITY
  15. CLONAZEPAM. [Concomitant]
     Active Substance: CLONAZEPAM
     Dosage: 0.5 MG, AT NIGHT

REACTIONS (6)
  - Dysphoria [Unknown]
  - Withdrawal syndrome [Unknown]
  - Irritability [Unknown]
  - Sleep disorder [Unknown]
  - Drug dependence [Unknown]
  - Intentional overdose [Unknown]
